FAERS Safety Report 15445787 (Version 1)
Quarter: 2018Q3

REPORT INFORMATION
  Report Type: Spontaneous
  Country: US (occurrence: US)
  Receive Date: 20180928
  Receipt Date: 20180928
  Transmission Date: 20181010
  Serious: No
  Sender: FDA-Public Use
  Company Number: US-JNJFOC-20180900909

PATIENT
  Age: 88 Year
  Sex: Female

DRUGS (1)
  1. TYLENOL REGULAR STRENGTH [Suspect]
     Active Substance: ACETAMINOPHEN
     Indication: PAIN IN EXTREMITY
     Route: 050
     Dates: start: 20180829

REACTIONS (3)
  - Pain in extremity [Not Recovered/Not Resolved]
  - Product container issue [Unknown]
  - Product label issue [Unknown]

NARRATIVE: CASE EVENT DATE: 20180829
